FAERS Safety Report 6070172-4 (Version None)
Quarter: 2009Q1

REPORT INFORMATION
  Report Type: 
  Country: None (occurrence: None)
  Receive Date: 20090209
  Receipt Date: 20090203
  Transmission Date: 20090719
  Serious: Yes (Life-Threatening)
  Sender: FDA-Public Use
  Company Number: JP-ASTRAZENECA-2009AP00962

PATIENT
  Age: 23 Year
  Sex: Female

DRUGS (3)
  1. NAROPIN [Suspect]
     Indication: NERVE BLOCK
     Route: 042
     Dates: start: 20090126, end: 20090126
  2. CEFAMEZIN [Concomitant]
     Dosage: DOSE UNKNOWN
     Route: 065
  3. LACTEC [Concomitant]
     Dosage: DOSE UNKNOWN
     Route: 065

REACTIONS (2)
  - CONVULSION [None]
  - DRUG ADMINISTRATION ERROR [None]
